FAERS Safety Report 8911259 (Version 3)
Quarter: 2013Q1

REPORT INFORMATION
  Report Type: Spontaneous
  Country: IT (occurrence: IT)
  Receive Date: 20121116
  Receipt Date: 20130117
  Transmission Date: 20140127
  Serious: Yes (Hospitalization)
  Sender: FDA-Public Use
  Company Number: IT-BRISTOL-MYERS SQUIBB COMPANY-17125832

PATIENT
  Age: 61 Year
  Sex: Male

DRUGS (6)
  1. ERBITUX SOLN FOR INF [Suspect]
     Indication: COLORECTAL CANCER
     Route: 042
     Dates: start: 20120710, end: 20121018
  2. IRINOTECAN [Concomitant]
     Indication: COLORECTAL CANCER
     Dosage: IV INF?MAY11-JUL11?24JUL12-18SEP12-180MG
     Route: 042
     Dates: start: 201105, end: 20120918
  3. ONDANSETRON [Concomitant]
     Indication: COLORECTAL CANCER
     Dosage: INTRAVENOUS INFUSION
     Route: 042
     Dates: start: 20120724, end: 20120918
  4. SOLDESAM [Concomitant]
     Indication: COLORECTAL CANCER
     Dosage: INTRAVENOUS INFUSION
     Route: 042
     Dates: start: 20120724, end: 20121018
  5. TRIMETON [Concomitant]
     Indication: COLORECTAL CANCER
     Dosage: INTRAVENOUS INFUSION
     Route: 042
     Dates: start: 20120724, end: 20121018
  6. ZANTAC [Concomitant]
     Indication: COLORECTAL CANCER
     Dosage: INTRAVENOUS INFUSION
     Route: 042
     Dates: start: 20120710, end: 20121018

REACTIONS (3)
  - Hyperglycaemia [Unknown]
  - Bronchopulmonary aspergillosis [Unknown]
  - General physical health deterioration [Unknown]
